FAERS Safety Report 5345268-2 (Version None)
Quarter: 2007Q2

REPORT INFORMATION
  Report Type: 
  Country: None (occurrence: None)
  Receive Date: 20070601
  Receipt Date: 20070514
  Transmission Date: 20071010
  Serious: Yes (Other)
  Sender: FDA-Public Use
  Company Number: JPI-P-001309

PATIENT
  Age: 44 Year
  Sex: Male

DRUGS (5)
  1. XYREM [Suspect]
     Indication: SOMNOLENCE
     Dosage: 7.5 GM (3.75 GM, 2 IN 1 D), ORAL
     Route: 048
     Dates: start: 20070328
  2. ZOLOFT [Concomitant]
  3. ABILIFY [Concomitant]
  4. DEXTROAMPETAMINE SULFATE TAB [Concomitant]
  5. PROVIGIL [Concomitant]

REACTIONS (3)
  - DEHYDRATION [None]
  - MUSCLE SPASMS [None]
  - MUSCLE TWITCHING [None]
